FAERS Safety Report 5458159-3 (Version None)
Quarter: 2007Q3

REPORT INFORMATION
  Report Type: 
  Country: None (occurrence: None)
  Receive Date: 20070917
  Receipt Date: 20070906
  Transmission Date: 20080115
  Serious: Yes (Life-Threatening)
  Sender: FDA-Public Use
  Company Number: 0708-688

PATIENT
  Age: 2 Day
  Sex: Male

DRUGS (2)
  1. CUROSURF [Suspect]
     Indication: RESPIRATORY DISTRESS
     Dosage: 120MG, QD, ENDOTRACHEAL
     Route: 007
     Dates: start: 20070507, end: 20070508
  2. CUROSURF [Suspect]

REACTIONS (1)
  - SEPSIS NEONATAL [None]
